FAERS Safety Report 16416495 (Version 1)
Quarter: 2019Q2

REPORT INFORMATION
  Report Type: Spontaneous
  Country: ES (occurrence: ES)
  Receive Date: 20190611
  Receipt Date: 20190611
  Transmission Date: 20190711
  Serious: Yes (Life-Threatening, Hospitalization, Disabling, Other)
  Sender: FDA-Public Use
  Company Number: ES-HQ SPECIALTY-ES-2019INT000154

PATIENT
  Age: 82 Year
  Sex: Female

DRUGS (5)
  1. ATROPINA                           /00002801/ [Concomitant]
     Active Substance: ATROPINE
     Indication: PRODUCT USED FOR UNKNOWN INDICATION
     Dosage: UNK (BEFORE STARTING THE PERFUSION OF DEXDOR)
     Route: 065
  2. NALOXONE [Concomitant]
     Active Substance: NALOXONE
     Indication: PRODUCT USED FOR UNKNOWN INDICATION
     Dosage: UNK (AFTER WITHDRAWAL OF THE PERFUSION)
     Route: 065
  3. DEXMEDETOMIDINE HYDROCHLORIDE. [Suspect]
     Active Substance: DEXMEDETOMIDINE HYDROCHLORIDE
     Indication: TRANSCATHETER AORTIC VALVE IMPLANTATION
     Dosage: UNK
     Route: 065
     Dates: start: 20190508
  4. FLUMAZENIL. [Concomitant]
     Active Substance: FLUMAZENIL
     Indication: PRODUCT USED FOR UNKNOWN INDICATION
     Dosage: UNK (AFTER WITHDRAWAL OF THE PERFUSION)
     Route: 065
  5. MIDAZOLAM [Concomitant]
     Active Substance: MIDAZOLAM HYDROCHLORIDE
     Indication: PRODUCT USED FOR UNKNOWN INDICATION
     Dosage: UNK (BEFORE STARTING THE PERFUSION OF DEXDOR)
     Route: 065

REACTIONS (2)
  - Sedation complication [Recovered/Resolved]
  - Coma [Recovered/Resolved]

NARRATIVE: CASE EVENT DATE: 20190508
